FAERS Safety Report 19699245 (Version 1)
Quarter: 2021Q3

REPORT INFORMATION
  Report Type: Spontaneous
  Country: DE (occurrence: DE)
  Receive Date: 20210813
  Receipt Date: 20210813
  Transmission Date: 20211014
  Serious: Yes (Life-Threatening, Hospitalization, Other)
  Sender: FDA-Public Use
  Company Number: DE-ASTRAZENECA-2021A660748

PATIENT
  Age: 56 Year
  Sex: Male
  Weight: 150 kg

DRUGS (16)
  1. ALFACALCIDOL [Concomitant]
     Active Substance: ALFACALCIDOL
     Dosage: 1UG/INHAL DAILY
     Route: 048
  2. AMLODIPIN [Concomitant]
     Active Substance: AMLODIPINE BESYLATE
     Route: 048
  3. CANDESARTAN. [Concomitant]
     Active Substance: CANDESARTAN
     Route: 048
  4. TORASEMID [Concomitant]
     Active Substance: TORSEMIDE
     Route: 048
  5. PREDNISOLON [Interacting]
     Active Substance: PREDNISOLONE
     Route: 048
  6. NATRIUMHYDROGENCARBONAT [Concomitant]
     Active Substance: SODIUM BICARBONATE
     Route: 048
  7. CICLOSPORIN [Interacting]
     Active Substance: CYCLOSPORINE
     Route: 048
  8. ROSUVASTATIN. [Suspect]
     Active Substance: ROSUVASTATIN
     Route: 048
  9. CICLOSPORIN [Interacting]
     Active Substance: CYCLOSPORINE
     Route: 048
  10. MYCOPHENOLSAURE [Interacting]
     Active Substance: MYCOPHENOLIC ACID
     Dosage: 360 MG, 2?0?2?0, RETARD TABLETS
     Route: 048
  11. METOPROLOL. [Concomitant]
     Active Substance: METOPROLOL
     Route: 048
  12. DOXAZOSINDOXAZOSIN [Concomitant]
     Route: 048
  13. POLYSTYROLSULFONAT [Concomitant]
     Dosage: 14.9 G, 0?1?0?0, POWDER
     Route: 048
  14. CICLOSPORIN [Interacting]
     Active Substance: CYCLOSPORINE
     Route: 048
  15. COLECALCIFEROL (VITAMIN D) [Concomitant]
     Active Substance: CHOLECALCIFEROL
     Dosage: 20,000 IU, ACCORDING TO THE SCHEME, CAPSULES
     Route: 048
  16. ALLOPURINOL. [Concomitant]
     Active Substance: ALLOPURINOL
     Route: 048

REACTIONS (5)
  - Labelled drug-drug interaction medication error [Unknown]
  - Headache [Unknown]
  - Dyspnoea [Unknown]
  - Cough [Unknown]
  - Haemoptysis [Unknown]
